FAERS Safety Report 12308511 (Version 5)
Quarter: 2016Q3

REPORT INFORMATION
  Report Type: Spontaneous
  Country: JP (occurrence: JP)
  Receive Date: 20160427
  Receipt Date: 20160707
  Transmission Date: 20161109
  Serious: Yes (Life-Threatening, Hospitalization, Other)
  Sender: FDA-Public Use
  Company Number: JP-AMGEN-JPNSP2016050785

PATIENT
  Age: 71 Year
  Sex: Male
  Weight: 55 kg

DRUGS (22)
  1. ENBREL [Suspect]
     Active Substance: ETANERCEPT
     Indication: RHEUMATOID ARTHRITIS
     Dosage: 6 TIMES MONTHLY
     Route: 058
     Dates: start: 2010, end: 201407
  2. MUCOSOLVAN L [Concomitant]
     Active Substance: AMBROXOL HYDROCHLORIDE
     Indication: CHRONIC SINUSITIS
     Dosage: UNK
  3. RHEUMATREX [Suspect]
     Active Substance: METHOTREXATE SODIUM
     Indication: RHEUMATOID ARTHRITIS
     Dosage: 4 MG, WEEKLY
     Route: 048
     Dates: start: 2010, end: 201407
  4. METHOTREXATE SODIUM. [Suspect]
     Active Substance: METHOTREXATE SODIUM
     Dosage: 8 MG, WEEKLY
     Route: 065
     Dates: start: 201603
  5. METHOTREXATE SODIUM. [Suspect]
     Active Substance: METHOTREXATE SODIUM
     Indication: RHEUMATOID ARTHRITIS
     Dosage: 4 MG, 2X/WEEK
     Route: 065
  6. METHOTREXATE SODIUM. [Suspect]
     Active Substance: METHOTREXATE SODIUM
     Dosage: 6 MG, WEEKLY
     Route: 065
     Dates: start: 201512
  7. ERYTHROCIN                         /00020901/ [Concomitant]
     Active Substance: ERYTHROMYCIN ETHYLSUCCINATE
     Indication: CHRONIC SINUSITIS
     Dosage: 200 MG, 2X/DAY
     Route: 048
     Dates: start: 20150915
  8. RHEUMATREX [Suspect]
     Active Substance: METHOTREXATE SODIUM
     Indication: RHEUMATOID ARTHRITIS
     Dosage: 4 MG, WEEKLY
     Route: 048
     Dates: start: 2010, end: 201407
  9. MUCOSOLVAN L [Concomitant]
     Active Substance: AMBROXOL HYDROCHLORIDE
     Dosage: 45 MG, DAILY
     Route: 048
  10. RHEUMATREX [Suspect]
     Active Substance: METHOTREXATE SODIUM
     Dosage: 8 MG, WEEKLY
     Route: 048
     Dates: start: 20160315
  11. BREDININ [Concomitant]
     Active Substance: MIZORIBINE
     Indication: RHEUMATOID ARTHRITIS
     Dosage: UNK
     Route: 048
     Dates: start: 2010
  12. GASLON [Concomitant]
     Active Substance: IRSOGLADINE MALEATE
     Indication: GASTRITIS PROPHYLAXIS
     Dosage: 2 MG, 2X/DAY
     Route: 048
  13. LENDORMIN [Concomitant]
     Active Substance: BROTIZOLAM
     Indication: INSOMNIA
     Dosage: 0.25 MG, 1X/DAY
     Route: 048
  14. ENBREL [Suspect]
     Active Substance: ETANERCEPT
     Dosage: 25 MG, 2X/WEEK
     Route: 058
     Dates: start: 20140812
  15. RHEUMATREX [Suspect]
     Active Substance: METHOTREXATE SODIUM
     Dosage: 6 MG, WEEKLY
     Route: 048
     Dates: start: 20160112, end: 20160315
  16. CELECOX [Concomitant]
     Active Substance: CELECOXIB
     Indication: RHEUMATOID ARTHRITIS
     Dosage: 100 MG, 2X/DAY
     Route: 048
  17. RHEUMATREX [Suspect]
     Active Substance: METHOTREXATE SODIUM
     Dosage: 4 MG, WEEKLY
     Route: 048
     Dates: start: 20140812, end: 20160112
  18. RHEUMATREX [Suspect]
     Active Substance: METHOTREXATE SODIUM
     Dosage: 6 MG, WEEKLY
     Route: 048
     Dates: start: 20160112, end: 20160315
  19. RHEUMATREX [Suspect]
     Active Substance: METHOTREXATE SODIUM
     Dosage: 8 MG, WEEKLY
     Route: 048
     Dates: start: 20160315
  20. GASLON [Concomitant]
     Active Substance: IRSOGLADINE MALEATE
     Dosage: 2 MG, 2X/DAY
     Route: 048
  21. RHEUMATREX [Suspect]
     Active Substance: METHOTREXATE SODIUM
     Dosage: 4 MG, WEEKLY
     Route: 048
     Dates: start: 20140812, end: 20160112
  22. ERYTHROCIN                         /00020901/ [Concomitant]
     Active Substance: ERYTHROMYCIN ETHYLSUCCINATE
     Indication: CHRONIC SINUSITIS
     Dosage: 200 MG, 2X/DAY
     Route: 048
     Dates: start: 20150915

REACTIONS (7)
  - Gait disturbance [Unknown]
  - Dysarthria [Unknown]
  - Pneumocystis jirovecii pneumonia [Recovering/Resolving]
  - Nausea [Unknown]
  - Pneumonia [Recovering/Resolving]
  - Therapeutic response decreased [Unknown]
  - Respiratory failure [Not Recovered/Not Resolved]

NARRATIVE: CASE EVENT DATE: 201407
